FAERS Safety Report 4571749-5 (Version None)
Quarter: 2005Q1

REPORT INFORMATION
  Report Type: 
  Country: None (occurrence: None)
  Receive Date: 20050202
  Receipt Date: 20050202
  Transmission Date: 20050727
  Serious: Yes (Life-Threatening)
  Sender: FDA-Public Use
  Company Number: None

PATIENT
  Age: 46 Year
  Sex: Female
  Weight: 84.8 kg

DRUGS (1)
  1. ADENOSCAN [Suspect]
     Indication: DIAGNOSTIC PROCEDURE
     Dosage: 46MG   ONCE    INTRAVENOU
     Route: 042
     Dates: start: 20041103, end: 20041103

REACTIONS (2)
  - BRONCHOSPASM [None]
  - INFUSION RELATED REACTION [None]
